FAERS Safety Report 25606860 (Version 4)
Quarter: 2025Q3

REPORT INFORMATION
  Report Type: Spontaneous
  Country: US (occurrence: US)
  Receive Date: 20250725
  Receipt Date: 20250922
  Transmission Date: 20251020
  Serious: Yes (Disabling, Other)
  Sender: AMGEN
  Company Number: US-AMGEN-USASP2025143702

PATIENT
  Age: 78 Year
  Sex: Female

DRUGS (89)
  1. TEPEZZA [Suspect]
     Active Substance: TEPROTUMUMAB-TRBW
     Indication: Graves^ disease
     Route: 040
     Dates: start: 20200625
  2. TEPEZZA [Suspect]
     Active Substance: TEPROTUMUMAB-TRBW
     Indication: Endocrine ophthalmopathy
     Route: 040
     Dates: start: 20220716
  3. TEPEZZA [Suspect]
     Active Substance: TEPROTUMUMAB-TRBW
     Route: 040
     Dates: start: 20200806
  4. TEPEZZA [Suspect]
     Active Substance: TEPROTUMUMAB-TRBW
     Route: 040
     Dates: start: 20200827
  5. TEPEZZA [Suspect]
     Active Substance: TEPROTUMUMAB-TRBW
     Route: 040
     Dates: start: 20200917
  6. TEPEZZA [Suspect]
     Active Substance: TEPROTUMUMAB-TRBW
     Route: 040
     Dates: start: 20201008
  7. TEPEZZA [Suspect]
     Active Substance: TEPROTUMUMAB-TRBW
     Route: 040
     Dates: start: 20201029
  8. TEPEZZA [Suspect]
     Active Substance: TEPROTUMUMAB-TRBW
     Route: 040
     Dates: start: 20201119
  9. PREDNISONE [Suspect]
     Active Substance: PREDNISONE
     Indication: Product used for unknown indication
     Route: 065
  10. Artificial tears [Concomitant]
     Dosage: UNK UNK, BID
     Route: 047
  11. ATORVASTATIN [Concomitant]
     Active Substance: ATORVASTATIN
     Dosage: 10 MILLIGRAM, QD
     Route: 048
  12. FLONASE [Concomitant]
     Active Substance: FLUTICASONE PROPIONATE
     Route: 065
  13. MELOXICAM [Concomitant]
     Active Substance: MELOXICAM
     Dosage: 15 MILLIGRAM, QD
     Route: 048
  14. MELOXICAM [Concomitant]
     Active Substance: MELOXICAM
     Dosage: 15 MILLIGRAM, BID
     Route: 048
  15. POTASSIUM [Concomitant]
     Active Substance: POTASSIUM
     Route: 065
  16. PROPYLTHIOURACIL [Concomitant]
     Active Substance: PROPYLTHIOURACIL
     Dosage: 50 MILLIGRAM, QD
     Route: 048
  17. PROPYLTHIOURACIL [Concomitant]
     Active Substance: PROPYLTHIOURACIL
     Dosage: 50 MILLIGRAM, QID
     Route: 048
  18. SELENIUM [Concomitant]
     Active Substance: SELENIUM
     Route: 065
  19. VITAMIN C [Concomitant]
     Active Substance: ASCORBIC ACID
     Route: 065
  20. ZYRTEC [Concomitant]
     Active Substance: CETIRIZINE HYDROCHLORIDE
     Route: 065
  21. DEBROX [Concomitant]
     Active Substance: CARBAMIDE PEROXIDE
     Route: 065
  22. DEPO-MEDROL [Concomitant]
     Active Substance: METHYLPREDNISOLONE ACETATE
     Route: 065
  23. BICILLIN [Concomitant]
     Active Substance: PENICILLIN G BENZATHINE
     Route: 065
  24. TORADOL [Concomitant]
     Active Substance: KETOROLAC TROMETHAMINE
     Route: 065
  25. ROCEPHIN [Concomitant]
     Active Substance: CEFTRIAXONE SODIUM
     Route: 065
  26. AMOXICILLIN [Concomitant]
     Active Substance: AMOXICILLIN
     Route: 065
  27. AUGMENTIN [Concomitant]
     Active Substance: AMOXICILLIN\CLAVULANATE POTASSIUM
     Route: 065
  28. OMNICEF [Concomitant]
     Active Substance: CEFDINIR
     Route: 065
  29. ZITHROMAX [Concomitant]
     Active Substance: AZITHROMYCIN DIHYDRATE
     Route: 065
  30. SUPRAX [Concomitant]
     Active Substance: CEFIXIME
     Route: 065
  31. KEFLEX [Concomitant]
     Active Substance: CEPHALEXIN
     Route: 065
  32. BIAXIN [Concomitant]
     Active Substance: CLARITHROMYCIN
  33. KEFTAB [Concomitant]
     Active Substance: CEPHALEXIN HYDROCHLORIDE
  34. LEVAQUIN [Concomitant]
     Active Substance: LEVOFLOXACIN
     Route: 065
  35. LINEZOLID [Concomitant]
     Active Substance: LINEZOLID
     Route: 065
  36. METRONIDAZOLE [Concomitant]
     Active Substance: METRONIDAZOLE
     Route: 065
  37. VANCOMYCIN [Concomitant]
     Active Substance: VANCOMYCIN
     Route: 065
  38. VOSOL [Concomitant]
     Active Substance: ACETIC ACID
  39. FLOXIN [Concomitant]
     Active Substance: OFLOXACIN
     Route: 065
  40. CIPRODEX [Concomitant]
     Active Substance: CIPROFLOXACIN HYDROCHLORIDE\DEXAMETHASONE
     Route: 065
  41. CLOTRIMAZOLE [Concomitant]
     Active Substance: CLOTRIMAZOLE
     Route: 065
  42. Auralgan [Concomitant]
     Route: 065
  43. Clovista [Concomitant]
  44. BUDESONIDE [Concomitant]
     Active Substance: BUDESONIDE
  45. NASACORT [Concomitant]
     Active Substance: TRIAMCINOLONE ACETONIDE
     Route: 065
  46. VANCENASE [Concomitant]
     Active Substance: BECLOMETHASONE DIPROPIONATE
  47. AZELASTINE [Concomitant]
     Active Substance: AZELASTINE
     Route: 065
  48. CROMOLYN [Concomitant]
     Active Substance: CROMOLYN
     Route: 065
  49. ATROVENT [Concomitant]
     Active Substance: IPRATROPIUM BROMIDE
     Route: 065
  50. PHENYLEPHRINE [Concomitant]
     Active Substance: PHENYLEPHRINE
     Route: 065
  51. SALINE [Concomitant]
     Active Substance: SODIUM CHLORIDE
     Route: 065
  52. DESLORATADINE [Concomitant]
     Active Substance: DESLORATADINE
     Route: 065
  53. FEXOFENADINE [Concomitant]
     Active Substance: FEXOFENADINE HYDROCHLORIDE
     Route: 065
  54. LORATADINE [Concomitant]
     Active Substance: LORATADINE
     Route: 065
  55. CETIRIZINE [Concomitant]
     Active Substance: CETIRIZINE HYDROCHLORIDE
     Route: 065
  56. DIPHENHYDRAMINE [Concomitant]
     Active Substance: DIPHENHYDRAMINE
     Route: 065
  57. MECLIZINE [Concomitant]
     Active Substance: MECLIZINE HYDROCHLORIDE
     Route: 065
  58. MONTELUKAST [Concomitant]
     Active Substance: MONTELUKAST
     Route: 065
  59. OLOPATADINE [Concomitant]
     Active Substance: OLOPATADINE
     Route: 065
  60. GUAIFENESIN [Concomitant]
     Active Substance: GUAIFENESIN
     Route: 065
  61. BENZONATATE [Concomitant]
     Active Substance: BENZONATATE
     Route: 065
  62. Carbodex [Concomitant]
     Route: 065
  63. NYSTATIN [Concomitant]
     Active Substance: NYSTATIN
     Route: 065
  64. PERCOCET [Concomitant]
     Active Substance: ACETAMINOPHEN\OXYCODONE HYDROCHLORIDE
     Route: 065
  65. OMEPRAZOLE [Concomitant]
     Active Substance: OMEPRAZOLE
     Route: 065
  66. NEXIUM [Concomitant]
     Active Substance: ESOMEPRAZOLE MAGNESIUM
     Route: 065
  67. PROTONIX [Concomitant]
     Active Substance: PANTOPRAZOLE SODIUM
     Route: 065
  68. RANITIDINE [Concomitant]
     Active Substance: RANITIDINE
     Route: 065
  69. VALTREX [Concomitant]
     Active Substance: VALACYCLOVIR HYDROCHLORIDE
     Route: 065
  70. TAMIFLU [Concomitant]
     Active Substance: OSELTAMIVIR PHOSPHATE
     Route: 065
  71. ADVAIR HFA [Concomitant]
     Active Substance: FLUTICASONE PROPIONATE\SALMETEROL XINAFOATE
     Route: 065
  72. ADVAIR HFA [Concomitant]
     Active Substance: FLUTICASONE PROPIONATE\SALMETEROL XINAFOATE
     Route: 065
  73. ADVAIR HFA [Concomitant]
     Active Substance: FLUTICASONE PROPIONATE\SALMETEROL XINAFOATE
     Route: 065
  74. FLOVENT [Concomitant]
     Active Substance: FLUTICASONE PROPIONATE
     Route: 065
  75. AVELOX [Concomitant]
     Active Substance: MOXIFLOXACIN HYDROCHLORIDE
     Route: 065
  76. CLINDAMYCIN [Concomitant]
     Active Substance: CLINDAMYCIN
     Route: 065
  77. DOMEBORO [Concomitant]
     Active Substance: ALUMINUM SULFATE TETRADECAHYDRATE\CALCIUM ACETATE MONOHYDRATE
  78. DERMOTIC [Concomitant]
     Active Substance: FLUOCINOLONE ACETONIDE
     Route: 065
  79. DOCUSATE [Concomitant]
     Active Substance: DOCUSATE
     Route: 065
  80. NASONEX [Concomitant]
     Active Substance: MOMETASONE FUROATE
  81. NASALIDE [Concomitant]
     Active Substance: FLUNISOLIDE
     Route: 065
  82. AFRIN [Concomitant]
     Active Substance: OXYMETAZOLINE HYDROCHLORIDE
     Route: 065
  83. VERAMYST [Concomitant]
     Active Substance: FLUTICASONE FUROATE
     Route: 065
  84. CHLORPHENIRAMINE MALEATE\HYDROCODONE BITARTRATE\PHENYLEPHRINE HYDROCHL [Concomitant]
     Active Substance: CHLORPHENIRAMINE MALEATE\HYDROCODONE BITARTRATE\PHENYLEPHRINE HYDROCHLORIDE
     Route: 065
  85. LIOTHYRONINE SODIUM [Concomitant]
     Active Substance: LIOTHYRONINE SODIUM
     Route: 065
  86. LORTAB [Concomitant]
     Active Substance: ACETAMINOPHEN\HYDROCODONE BITARTRATE
     Route: 065
  87. DIFLUCAN [Concomitant]
     Active Substance: FLUCONAZOLE
     Route: 065
  88. MEDROL [Concomitant]
     Active Substance: METHYLPREDNISOLONE
     Route: 065
  89. ZANTAC [Concomitant]
     Active Substance: RANITIDINE HYDROCHLORIDE
     Route: 065

REACTIONS (26)
  - Deafness neurosensory [Not Recovered/Not Resolved]
  - Chemotherapy [Unknown]
  - Endocrine ophthalmopathy [Unknown]
  - Graves^ disease [Unknown]
  - Pain [Unknown]
  - Emotional distress [Unknown]
  - Anxiety [Unknown]
  - Impaired quality of life [Unknown]
  - Discomfort [Unknown]
  - Tinnitus [Not Recovered/Not Resolved]
  - Product use complaint [Unknown]
  - Dizziness [Unknown]
  - Migraine [Unknown]
  - Sinonasal obstruction [Unknown]
  - Oropharyngeal pain [Unknown]
  - Dyspepsia [Unknown]
  - Communication disorder [Not Recovered/Not Resolved]
  - Infection [Unknown]
  - Exercise tolerance decreased [Unknown]
  - Pollakiuria [Unknown]
  - Musculoskeletal pain [Unknown]
  - Cerumen impaction [Unknown]
  - Ear pain [Unknown]
  - Ear discomfort [Not Recovered/Not Resolved]
  - Muscle spasms [Unknown]
  - Headache [Unknown]

NARRATIVE: CASE EVENT DATE: 20200101
